FAERS Safety Report 4957981-7 (Version None)
Quarter: 2006Q1

REPORT INFORMATION
  Report Type: 
  Country: None (occurrence: None)
  Receive Date: 20060330
  Receipt Date: 20060316
  Transmission Date: 20060701
  Serious: Yes (Other)
  Sender: FDA-Public Use
  Company Number: PHEH2006US03577

PATIENT
  Age: 52 Year
  Sex: Female

DRUGS (6)
  1. IMIPRAMINE [Suspect]
  2. CLOZAPINE [Suspect]
     Indication: BIPOLAR DISORDER
     Dosage: 12.5 MG, UNK
     Dates: start: 20020101, end: 20051122
  3. CLOZAPINE [Suspect]
     Dosage: 25 MG, UNK
  4. CLOZAPINE [Suspect]
     Dosage: 50 MG, UNK
  5. HYDROXYCHLOROQUINE PHOSPHATE [Suspect]
  6. PROCHLORPERAZINE [Suspect]

REACTIONS (5)
  - ERYTHEMA INFECTIOSUM [None]
  - GRANULOCYTOPENIA [None]
  - LEUKOPENIA [None]
  - NEUTROPENIA [None]
  - THROMBOCYTOPENIA [None]
